FAERS Safety Report 13110655 (Version 2)
Quarter: 2017Q1

REPORT INFORMATION
  Report Type: Report from Study
  Country: US (occurrence: US)
  Receive Date: 20170112
  Receipt Date: 20170321
  Transmission Date: 20170428
  Serious: Yes (Other)
  Sender: FDA-Public Use
  Company Number: US-REGENERON PHARMACEUTICALS, INC.-2017-10181

PATIENT

DRUGS (2)
  1. EYLEA [Suspect]
     Active Substance: AFLIBERCEPT
     Dosage: LAST INJECTIONS IN THE BEGINNING OF DECEMBER
     Dates: start: 201612, end: 201612
  2. EYLEA [Suspect]
     Active Substance: AFLIBERCEPT
     Indication: NEOVASCULAR AGE-RELATED MACULAR DEGENERATION
     Dosage: UNKNOWN, PATIENT BELIEVES SHE RECEIVES INJECTIONS TO EACH EYE EVERY 12 WEEKS
     Dates: start: 20090115

REACTIONS (2)
  - Hypoacusis [Unknown]
  - Gastric cancer [Unknown]

NARRATIVE: CASE EVENT DATE: 201701
